FAERS Safety Report 9649438 (Version 2)
Quarter: 2014Q3

REPORT INFORMATION
  Report Type: Spontaneous
  Country: US (occurrence: None)
  Receive Date: 20131018
  Receipt Date: 20140722
  Transmission Date: 20150326
  Serious: No
  Sender: FDA-Public Use
  Company Number: AEGR000092

PATIENT
  Age: 67 Year
  Sex: Female
  Weight: 63.5 kg

DRUGS (9)
  1. TERBINAFINE(TERBINAFINE) [Concomitant]
     Active Substance: TERBINAFINE
  2. VITAMIN D (COLECALCIFEROL) [Concomitant]
  3. CO-Q10-CHLORELLA(UBIDECARENONE) [Concomitant]
  4. MULTIVITAMIN(VITAMIN NOS) [Concomitant]
  5. JUXTAPID [Suspect]
     Active Substance: LOMITAPIDE MESYLATE
     Indication: TYPE IIA HYPERLIPIDAEMIA
     Route: 048
     Dates: start: 20130310, end: 20130714
  6. LIPITOR(ATORVASTATIN CALCIUM) [Concomitant]
  7. SIMVASTATIN(SIMVASTATIN) [Concomitant]
     Active Substance: SIMVASTATIN
  8. WELCHOL(COLESEVELAM HYDROCHLORIDE) [Concomitant]
  9. PROPAFENONE(PROPAFENONE HYDROCHLORIDE) [Concomitant]

REACTIONS (2)
  - Diarrhoea [None]
  - Nausea [None]

NARRATIVE: CASE EVENT DATE: 20130714
